FAERS Safety Report 5076987-3 (Version None)
Quarter: 2006Q3

REPORT INFORMATION
  Report Type: 
  Country: None (occurrence: None)
  Receive Date: 20060810
  Receipt Date: 20060731
  Transmission Date: 20061208
  Serious: Yes (Disabling)
  Sender: FDA-Public Use
  Company Number: 2006AP03601

PATIENT
  Age: 58 Year
  Sex: Female

DRUGS (4)
  1. XYLOCAINE VISCOUS [Suspect]
     Indication: ANAESTHESIA
     Route: 061
     Dates: start: 20060720, end: 20060720
  2. BUSCOPAN [Suspect]
     Indication: ANAESTHETIC PREMEDICATION
     Dates: start: 20060720, end: 20060720
  3. BAROSPERSE [Concomitant]
     Indication: ANAESTHETIC PREMEDICATION
     Dosage: ONE PUSH
     Dates: start: 20060720, end: 20060720
  4. JUSO-JO [Concomitant]
     Indication: ANAESTHETIC PREMEDICATION
     Dates: start: 20060720, end: 20060720

REACTIONS (1)
  - MEMORY IMPAIRMENT [None]
